FAERS Safety Report 6162367-6 (Version None)
Quarter: 2009Q2

REPORT INFORMATION
  Report Type: 
  Country: None (occurrence: None)
  Receive Date: 20090421
  Receipt Date: 20090408
  Transmission Date: 20091009
  Serious: Yes (Death, Other)
  Sender: FDA-Public Use
  Company Number: US-PFIZER INC-2008099005

PATIENT
  Sex: Female
  Weight: 107.94 kg

DRUGS (12)
  1. CHANTIX [Suspect]
     Indication: SMOKING CESSATION THERAPY
     Dosage: 1 MG, 2X/DAY
     Route: 048
     Dates: start: 20071220
  2. LYRICA [Suspect]
     Indication: FIBROMYALGIA
     Dosage: 100 MG, 2X/DAY
     Route: 048
     Dates: start: 20080401
  3. ELAVIL [Suspect]
     Dosage: 100 MG, 1X/DAY
  4. FLEXERIL [Suspect]
     Dosage: UNK
  5. KLONOPIN [Suspect]
     Dosage: 0.5 MG, 2X/DAY
  6. SPIRIVA [Concomitant]
     Dosage: UNK
  7. ZOLOFT [Concomitant]
     Dosage: UNK
  8. OXYCONTIN [Concomitant]
     Dosage: 10 MG, 3X/DAY
  9. SKELAXIN [Concomitant]
     Dosage: 800 MG, 4X/DAY
  10. NEURONTIN [Concomitant]
     Dosage: 300 MG, 4X/DAY
  11. ZETIA [Concomitant]
     Dosage: UNK
  12. SEPTRA DS [Concomitant]
     Indication: URINARY TRACT INFECTION
     Dosage: UNK

REACTIONS (5)
  - ACCIDENTAL DEATH [None]
  - ANTICONVULSANT DRUG LEVEL ABOVE THERAPEUTIC [None]
  - DRUG LEVEL ABOVE THERAPEUTIC [None]
  - THERAPEUTIC AGENT TOXICITY [None]
  - URINARY TRACT INFECTION [None]
